FAERS Safety Report 4533164-X (Version None)
Quarter: 2004Q4

REPORT INFORMATION
  Report Type: 
  Country: None (occurrence: None)
  Receive Date: 20041206
  Receipt Date: 20041022
  Transmission Date: 20050328
  Serious: No
  Sender: FDA-Public Use
  Company Number: USA041082042

PATIENT
  Age: 39 Year
  Sex: Male

DRUGS (1)
  1. CYMBALTA [Suspect]
     Indication: DEPRESSION
     Dosage: 60 MG DAY

REACTIONS (2)
  - NAUSEA [None]
  - VOMITING [None]
